FAERS Safety Report 4749141-X (Version None)
Quarter: 2005Q3

REPORT INFORMATION
  Report Type: 
  Country: None (occurrence: None)
  Receive Date: 20050812
  Receipt Date: 20050421
  Transmission Date: 20060218
  Serious: Yes (Death)
  Sender: FDA-Public Use
  Company Number: 397284

PATIENT
  Age: 52 Year
  Sex: Male

DRUGS (2)
  1. PEGASYS [Suspect]
     Indication: HEPATITIS VIRAL
  2. COPEGUS [Suspect]
     Indication: HEPATITIS VIRAL

REACTIONS (1)
  - DEATH [None]
